FAERS Safety Report 12729044 (Version 5)
Quarter: 2017Q4

REPORT INFORMATION
  Report Type: Spontaneous
  Country: US (occurrence: US)
  Receive Date: 20160909
  Receipt Date: 20171130
  Transmission Date: 20180320
  Serious: Yes (Death)
  Sender: FDA-Public Use
  Company Number: US-MYLANLABS-2016M1037118

PATIENT
  Age: 17 Year
  Sex: Male
  Weight: 37.19 kg

DRUGS (1)
  1. EPIPEN [Suspect]
     Active Substance: EPINEPHRINE
     Indication: HYPERSENSITIVITY
     Dosage: UNK, PRN
     Route: 030
     Dates: start: 20160829, end: 20160829

REACTIONS (4)
  - Device failure [Fatal]
  - Device use issue [Fatal]
  - Drug dose omission [Fatal]
  - Product quality issue [Fatal]

NARRATIVE: CASE EVENT DATE: 20160829
